FAERS Safety Report 10288280 (Version 2)
Quarter: 2014Q3

REPORT INFORMATION
  Report Type: Spontaneous
  Country: FR (occurrence: FR)
  Receive Date: 20140709
  Receipt Date: 20140718
  Transmission Date: 20150326
  Serious: Yes (Other)
  Sender: FDA-Public Use
  Company Number: FR-PFIZER INC-2014186710

PATIENT
  Age: 78 Year
  Sex: Male

DRUGS (6)
  1. OXYGEN. [Concomitant]
     Active Substance: OXYGEN
     Indication: IDIOPATHIC PULMONARY FIBROSIS
     Dosage: 24/24H
  2. MIFLONIL [Concomitant]
     Active Substance: BUDESONIDE
     Route: 055
  3. MEDROL [Suspect]
     Active Substance: METHYLPREDNISOLONE
     Dosage: 48 MG 3 TABLETS, DAILY
     Dates: start: 20140519, end: 20140526
  4. KARDEGIC [Concomitant]
     Active Substance: ASPIRIN LYSINE
     Dosage: 75 MG, DAILY
  5. MEDROL [Suspect]
     Active Substance: METHYLPREDNISOLONE
     Dosage: 32 MG 2 TABLET, DAILY
     Dates: start: 20140527, end: 20140603
  6. MEDROL [Suspect]
     Active Substance: METHYLPREDNISOLONE
     Dosage: 16 MG, ALTERNATE DAY
     Dates: start: 20140604

REACTIONS (3)
  - Pain in extremity [Unknown]
  - Contusion [Unknown]
  - Hypoaesthesia [Unknown]

NARRATIVE: CASE EVENT DATE: 2014
